FAERS Safety Report 15476292 (Version 2)
Quarter: 2018Q4

REPORT INFORMATION
  Report Type: Spontaneous
  Country: IT (occurrence: IT)
  Receive Date: 20181009
  Receipt Date: 20181031
  Transmission Date: 20190205
  Serious: Yes (Other)
  Sender: FDA-Public Use
  Company Number: PHHY2018IT119848

PATIENT
  Age: 60 Year
  Sex: Female
  Weight: 55 kg

DRUGS (1)
  1. ACLASTA [Suspect]
     Active Substance: ZOLEDRONIC ACID
     Indication: OSTEOPOROTIC FRACTURE
     Dosage: 5 MG, ONCE A YEAR
     Route: 041
     Dates: start: 201803, end: 201809

REACTIONS (4)
  - Osteonecrosis of jaw [Recovered/Resolved]
  - Oral mucosal erythema [Unknown]
  - Pain in jaw [Unknown]
  - Swelling face [Unknown]

NARRATIVE: CASE EVENT DATE: 20180801
